FAERS Safety Report 9215290 (Version 1)
Quarter: 2013Q2

REPORT INFORMATION
  Report Type: Spontaneous
  Country: GB (occurrence: GB)
  Receive Date: 20130405
  Receipt Date: 20130405
  Transmission Date: 20140414
  Serious: Yes (Other)
  Sender: FDA-Public Use
  Company Number: GB-BAUSCH-BL-2013-001871

PATIENT
  Age: 50 Year
  Sex: Female
  Weight: 54 kg

DRUGS (12)
  1. PREDNISOLONE [Suspect]
     Indication: SYSTEMIC LUPUS ERYTHEMATOSUS
     Route: 065
     Dates: start: 200712
  2. PREDNISOLONE [Suspect]
     Dosage: 1 / 1 DAYS
     Route: 065
  3. HYDROXYCHLOROQUINE [Suspect]
     Indication: CONNECTIVE TISSUE DISORDER
     Dosage: 1 / 1 DAYS
     Route: 065
     Dates: start: 200701, end: 20120202
  4. HYDROXYCHLOROQUINE [Suspect]
     Dosage: 1 / 1 DAYS
     Route: 065
     Dates: start: 201209
  5. COLECALCIFEROL/MAGNESIUM/ZINC/CALCIUM [Suspect]
     Dosage: 2 / 1 DAYS
     Route: 048
  6. DICLOFENAC SODIUM [Suspect]
     Dosage: AS NECESSARY
     Route: 048
  7. AMITRIPTYLINE [Concomitant]
     Indication: PRODUCT USED FOR UNKNOWN INDICATION
     Dosage: 1 / 1 DAYS
  8. BECLOMETASONE DIPROPIONATE [Concomitant]
     Indication: PRODUCT USED FOR UNKNOWN INDICATION
     Dosage: 2 / 1 DAYS
     Route: 045
  9. CODEINE PHOSPHATE/PARACETAMOL [Concomitant]
     Indication: PRODUCT USED FOR UNKNOWN INDICATION
     Dosage: AS NECESSARY
  10. OENOTHERA BIENNIS OIL [Concomitant]
     Indication: PRODUCT USED FOR UNKNOWN INDICATION
     Dosage: 1 / 1 DAYS
  11. FERROUS FUMARATE [Concomitant]
     Indication: PRODUCT USED FOR UNKNOWN INDICATION
     Dosage: 2 / 1 DAYS
  12. CROMOGLICATE SODIUM [Concomitant]
     Dosage: 2/ 1 DAYS
     Route: 047

REACTIONS (7)
  - Facial pain [Not Recovered/Not Resolved]
  - Inflammation [Not Recovered/Not Resolved]
  - Photosensitivity reaction [Not Recovered/Not Resolved]
  - Rash [Not Recovered/Not Resolved]
  - Erythema [Not Recovered/Not Resolved]
  - Pain [Not Recovered/Not Resolved]
  - Paraesthesia [Not Recovered/Not Resolved]
